FAERS Safety Report 8174703-X (Version None)
Quarter: 2012Q1

REPORT INFORMATION
  Report Type: 
  Country: None (occurrence: None)
  Receive Date: 20120229
  Receipt Date: 20120223
  Transmission Date: 20120608
  Serious: Yes (Hospitalization)
  Sender: FDA-Public Use
  Company Number: US-GLAXOSMITHKLINE-A0967888A

PATIENT
  Age: 81 Year
  Sex: Female
  Weight: 75.9 kg

DRUGS (4)
  1. ALKERAN [Suspect]
     Indication: MULTIPLE MYELOMA
     Dosage: 2MG PER DAY
     Route: 048
     Dates: start: 20111007
  2. PREDNISONE TAB [Concomitant]
     Dates: start: 20111001
  3. ZOMETA [Concomitant]
     Dates: start: 20111001
  4. PAIN MEDICATION [Concomitant]

REACTIONS (5)
  - SHOCK [None]
  - SYNCOPE [None]
  - PRESYNCOPE [None]
  - VOMITING [None]
  - HYPOTENSION [None]
